FAERS Safety Report 6022802-0 (Version None)
Quarter: 2008Q4

REPORT INFORMATION
  Report Type: 
  Country: None (occurrence: None)
  Receive Date: 20081230
  Receipt Date: 20081217
  Transmission Date: 20090506
  Serious: Yes (Disabling)
  Sender: FDA-Public Use
  Company Number: GB-ELI_LILLY_AND_COMPANY-GB200812004394

PATIENT
  Age: 84 Year
  Sex: Female

DRUGS (9)
  1. OLANZAPINE [Suspect]
     Indication: SOMNAMBULISM
     Dosage: 2.5 MG, DAILY (1/D)
     Dates: start: 20070901
  2. ARICEPT [Concomitant]
     Indication: DEMENTIA ALZHEIMER'S TYPE
     Dosage: 10 MG, UNK
     Route: 048
     Dates: start: 20070901
  3. ALENDRONIC ACID [Concomitant]
     Indication: OSTEOPOROSIS
     Dosage: 70 MG, WEEKLY (1/W)
     Route: 048
  4. ASPIRIN [Concomitant]
     Indication: TRANSIENT ISCHAEMIC ATTACK
     Dosage: 75 MG, DAILY (1/D)
     Route: 048
  5. CALCIUM [Concomitant]
     Indication: OSTEOPOROSIS
     Dosage: 1 D/F, DAILY (1/D)
     Route: 048
  6. MELOXICAM [Concomitant]
     Indication: OSTEOARTHRITIS
     Dosage: 7.5 MG, OTHER
     Route: 048
  7. OMEPRAZOLE [Concomitant]
     Indication: GASTROOESOPHAGEAL REFLUX DISEASE
     Dosage: 10 MG, DAILY (1/D)
     Route: 048
  8. TRAMACET [Concomitant]
     Indication: ANALGESIA
     Dosage: 2 D/F, DAILY (1/D)
     Route: 048
  9. VITAMIN D [Concomitant]
     Indication: OSTEOPOROSIS
     Dosage: 1 D/F, DAILY (1/D)

REACTIONS (3)
  - COGNITIVE DISORDER [None]
  - INTENTIONAL DRUG MISUSE [None]
  - VISUAL ACUITY REDUCED [None]
